FAERS Safety Report 24388302 (Version 1)
Quarter: 2024Q4

REPORT INFORMATION
  Report Type: Spontaneous
  Country: CN (occurrence: CN)
  Receive Date: 20241002
  Receipt Date: 20241002
  Transmission Date: 20250115
  Serious: Yes (Hospitalization)
  Sender: ELI LILLY AND CO
  Company Number: CN-Merck Healthcare KGaA-2024050715

PATIENT
  Age: 78 Year
  Sex: Male
  Weight: 48 kg

DRUGS (4)
  1. ERBITUX [Suspect]
     Active Substance: CETUXIMAB
     Indication: Tongue neoplasm malignant stage unspecified
     Dosage: 600 MG, UNKNOWN
     Route: 041
     Dates: start: 20240806, end: 20240806
  2. ERBITUX [Suspect]
     Active Substance: CETUXIMAB
     Dosage: 760 MG, UNKNOWN
     Route: 041
     Dates: start: 20240815
  3. TORIPALIMAB [Suspect]
     Active Substance: TORIPALIMAB
     Indication: Tongue neoplasm malignant stage unspecified
     Dosage: 240 MG, UNKNOWN
     Route: 041
     Dates: start: 20240808, end: 20240808
  4. PACLITAXEL [Suspect]
     Active Substance: PACLITAXEL
     Indication: Tongue neoplasm malignant stage unspecified
     Dosage: 150 MG, OTHER (1 EVERY 2 DAY)
     Route: 041
     Dates: start: 20240806, end: 20240808

REACTIONS (1)
  - Myelosuppression [Recovering/Resolving]

NARRATIVE: CASE EVENT DATE: 20240813
